FAERS Safety Report 20580010 (Version 1)
Quarter: 2022Q1

REPORT INFORMATION
  Report Type: Spontaneous
  Country: HR (occurrence: None)
  Receive Date: 20220310
  Receipt Date: 20220310
  Transmission Date: 20220424
  Serious: Yes (Other)
  Sender: FDA-Public Use
  Company Number: HR-ROCHE-3045680

PATIENT
  Sex: Male

DRUGS (4)
  1. RIVOTRIL [Suspect]
     Active Substance: CLONAZEPAM
     Indication: Product used for unknown indication
     Route: 048
  2. FEVARIN [Suspect]
     Active Substance: FLUVOXAMINE MALEATE
     Indication: Product used for unknown indication
     Route: 048
  3. ALPRAZOLAM [Suspect]
     Active Substance: ALPRAZOLAM
     Indication: Product used for unknown indication
     Route: 048
  4. ZALDIAR [Suspect]
     Active Substance: ACETAMINOPHEN\TRAMADOL HYDROCHLORIDE
     Indication: Product used for unknown indication
     Dosage: 8 DF, DAILY (DF = 37.5 MG TRAMADOL CHLORIDE + 325 MG PARACETAMOL)
     Route: 048

REACTIONS (2)
  - Somnolence [Unknown]
  - Suicide attempt [Unknown]

NARRATIVE: CASE EVENT DATE: 20210801
